FAERS Safety Report 9509429 (Version 2)
Quarter: 2013Q3

REPORT INFORMATION
  Report Type: Spontaneous
  Country: US (occurrence: US)
  Receive Date: 20130909
  Receipt Date: 20130909
  Transmission Date: 20140515
  Serious: No
  Sender: FDA-Public Use
  Company Number: US-BRISTOL-MYERS SQUIBB COMPANY-17293069

PATIENT
  Age: 38 Year
  Sex: Male

DRUGS (4)
  1. ABILIFY [Suspect]
     Indication: BIPOLAR DISORDER
     Dosage: 30JAN13
     Route: 048
     Dates: start: 20120511
  2. CLONAZEPAM [Concomitant]
  3. LITHIUM [Concomitant]
  4. VIIBRYD [Concomitant]

REACTIONS (1)
  - Tardive dyskinesia [Recovered/Resolved]
